FAERS Safety Report 9365273 (Version 2)
Quarter: 2013Q3

REPORT INFORMATION
  Report Type: Spontaneous
  Country: FR (occurrence: FR)
  Receive Date: 20130625
  Receipt Date: 20130710
  Transmission Date: 20140515
  Serious: Yes (Life-Threatening, Hospitalization)
  Sender: FDA-Public Use
  Company Number: FR-AMGEN-FRASP2013043886

PATIENT
  Age: 48 Year
  Sex: Male

DRUGS (3)
  1. ENBREL [Suspect]
     Indication: PRODUCT USED FOR UNKNOWN INDICATION
     Dosage: UNK
     Route: 065
     Dates: end: 20121209
  2. TRANSIPEG                          /00754501/ [Concomitant]
     Dosage: 3350
  3. NEFOPAM                            /00396102/ [Concomitant]
     Dosage: UNK

REACTIONS (2)
  - Rectal adenocarcinoma [Unknown]
  - Rectal cancer [Unknown]
